FAERS Safety Report 6244147-6 (Version None)
Quarter: 2009Q2

REPORT INFORMATION
  Report Type: 
  Country: None (occurrence: None)
  Receive Date: 20090623
  Receipt Date: 20090623
  Transmission Date: 20091009
  Serious: No
  Sender: FDA-Public Use
  Company Number: None

PATIENT
  Age: 49 Year
  Sex: Male
  Weight: 90.7 kg

DRUGS (1)
  1. ARIPIPRAZOLE [Suspect]
     Indication: BIPOLAR I DISORDER
     Dosage: 5 MG PO
     Route: 048
     Dates: start: 20080929, end: 20090611

REACTIONS (5)
  - AKATHISIA [None]
  - ANXIETY [None]
  - DEPRESSION [None]
  - DISCOMFORT [None]
  - TREMOR [None]
